FAERS Safety Report 11211243 (Version 1)
Quarter: 2015Q2

REPORT INFORMATION
  Report Type: Spontaneous
  Country: US (occurrence: None)
  Receive Date: 20150619
  Receipt Date: 20150619
  Transmission Date: 20150821
  Serious: Yes (Hospitalization)
  Sender: FDA-Public Use
  Company Number: None

PATIENT
  Age: 71 Year
  Sex: Female
  Weight: 53.9 kg

DRUGS (8)
  1. PAXIL [Concomitant]
     Active Substance: PAROXETINE HYDROCHLORIDE
  2. LIPITOR [Concomitant]
     Active Substance: ATORVASTATIN CALCIUM
  3. VITAMIN D [Concomitant]
     Active Substance: CHOLECALCIFEROL
  4. FOSAMAX [Concomitant]
     Active Substance: ALENDRONATE SODIUM
  5. CALCIUM CARBONATE. [Concomitant]
     Active Substance: CALCIUM CARBONATE
  6. ASPIRIN. [Concomitant]
     Active Substance: ASPIRIN
  7. MORPHINE [Suspect]
     Active Substance: MORPHINE
     Indication: PROCEDURAL PAIN
     Dosage: ?
     Route: 042
  8. XALATAN [Concomitant]
     Active Substance: LATANOPROST

REACTIONS (4)
  - Unresponsive to stimuli [None]
  - Sedation [None]
  - Apnoea [None]
  - Somnolence [None]

NARRATIVE: CASE EVENT DATE: 20141219
